FAERS Safety Report 5989391-8 (Version None)
Quarter: 2008Q4

REPORT INFORMATION
  Report Type: 
  Country: None (occurrence: None)
  Receive Date: 20081210
  Receipt Date: 20081128
  Transmission Date: 20090506
  Serious: Yes (Other)
  Sender: FDA-Public Use
  Company Number: FR-ROCHE-594043

PATIENT
  Age: 42 Year
  Sex: Female

DRUGS (3)
  1. XELODA [Suspect]
     Route: 065
     Dates: start: 20080221
  2. LEVOTHYROX [Concomitant]
  3. LEVOTHYROX [Concomitant]

REACTIONS (1)
  - THYROID DISORDER [None]
